FAERS Safety Report 25052970 (Version 1)
Quarter: 2025Q1

REPORT INFORMATION
  Report Type: Spontaneous
  Country: US (occurrence: US)
  Receive Date: 20250307
  Receipt Date: 20250307
  Transmission Date: 20250409
  Serious: No
  Sender: SANOFI AVENTIS
  Company Number: US-SA-2025SA061799

PATIENT
  Sex: Female

DRUGS (4)
  1. CABLIVI [Suspect]
     Active Substance: CAPLACIZUMAB-YHDP
     Route: 065
     Dates: start: 20250203, end: 202502
  2. CABLIVI [Suspect]
     Active Substance: CAPLACIZUMAB-YHDP
     Route: 065
     Dates: start: 20250203, end: 202502
  3. CABLIVI [Suspect]
     Active Substance: CAPLACIZUMAB-YHDP
     Route: 065
     Dates: start: 20250203, end: 202502
  4. CABLIVI [Suspect]
     Active Substance: CAPLACIZUMAB-YHDP
     Route: 065
     Dates: start: 20250203, end: 202502

REACTIONS (1)
  - Condition aggravated [Unknown]

NARRATIVE: CASE EVENT DATE: 20250201
